FAERS Safety Report 5215395-9 (Version None)
Quarter: 2007Q1

REPORT INFORMATION
  Report Type: 
  Country: None (occurrence: None)
  Receive Date: 20070116
  Receipt Date: 20070104
  Transmission Date: 20070707
  Serious: Yes (Hospitalization)
  Sender: FDA-Public Use
  Company Number: 2007-152512-NL

PATIENT
  Sex: Male

DRUGS (8)
  1. MIRTAZAPINE [Suspect]
     Dosage: 30 MG ORAL
     Route: 048
  2. CARBOPLATIN [Suspect]
     Dosage: DF INTRAVENOUS (NOS)
     Route: 042
  3. ETOPOSIDE [Suspect]
     Dosage: DF INTRAVENOUS (NOS)
     Route: 042
  4. FLUCONAZOLE [Suspect]
     Dosage: 200 MG
  5. BACTRIM [Suspect]
     Dosage: DF ORAL
     Route: 048
  6. IFOSFAMIDE [Suspect]
     Indication: MALIGNANT LYMPHOID NEOPLASM
     Dosage: 12 G INTRAVENOUS (NOS)
     Route: 042
     Dates: start: 20060731, end: 20060802
  7. IFOSFAMIDE [Suspect]
  8. MESNA [Suspect]
     Dosage: 12 G INTRAVENOUS (NOS)
     Route: 042

REACTIONS (6)
  - ABNORMAL BEHAVIOUR [None]
  - CONFUSIONAL STATE [None]
  - ENCEPHALOPATHY [None]
  - HAEMODIALYSIS [None]
  - HALLUCINATION [None]
  - RENAL FAILURE ACUTE [None]
